FAERS Safety Report 9150765 (Version 2)
Quarter: 2013Q1

REPORT INFORMATION
  Report Type: Spontaneous
  Country: US (occurrence: None)
  Receive Date: 20130214
  Receipt Date: 20130219
  Transmission Date: 20140127
  Serious: Yes (Hospitalization, Other)
  Sender: FDA-Public Use
  Company Number: 2013-0171

PATIENT
  Age: 82 Year
  Sex: Male

DRUGS (2)
  1. KYPROLIS [Suspect]
     Indication: PLASMA CELL MYELOMA
     Dosage: 2 IN 1 WK
  2. ASA [Concomitant]

REACTIONS (4)
  - Pneumonia [None]
  - Acute myocardial infarction [None]
  - Blood creatinine abnormal [None]
  - Asthenia [None]
